FAERS Safety Report 9638659 (Version 1)
Quarter: 2013Q4

REPORT INFORMATION
  Report Type: Spontaneous
  Country: US (occurrence: US)
  Receive Date: 20131022
  Receipt Date: 20131022
  Transmission Date: 20140711
  Serious: No
  Sender: FDA-Public Use
  Company Number: US-BRISTOL-MYERS SQUIBB COMPANY-19376649

PATIENT
  Age: 72 Year
  Sex: Female
  Weight: 110.65 kg

DRUGS (6)
  1. ELIQUIS [Suspect]
     Indication: ATRIAL FIBRILLATION
     Dates: start: 201308
  2. METOPROLOL [Concomitant]
  3. ASPIRIN [Concomitant]
  4. SYNTHROID [Concomitant]
  5. AVAPRO [Concomitant]
  6. EYE DROPS [Concomitant]

REACTIONS (2)
  - Gout [Unknown]
  - Hordeolum [Unknown]
